FAERS Safety Report 4518226-5 (Version None)
Quarter: 2004Q4

REPORT INFORMATION
  Report Type: 
  Country: None (occurrence: None)
  Receive Date: 20041130
  Receipt Date: 20041119
  Transmission Date: 20050328
  Serious: Yes (Hospitalization)
  Sender: FDA-Public Use
  Company Number: 2004UW21543

PATIENT
  Age: 63 Year
  Sex: Female
  Weight: 41 kg

DRUGS (4)
  1. IRESSA [Suspect]
     Indication: NON-SMALL CELL LUNG CANCER
     Dosage: 250 MG DAILY PO
     Route: 048
     Dates: start: 20040918, end: 20041027
  2. NICOTINE [Concomitant]
  3. COMPAZINE [Concomitant]
  4. KLOR-CON [Concomitant]

REACTIONS (13)
  - ABASIA [None]
  - ASTHENIA [None]
  - BLOOD ALBUMIN DECREASED [None]
  - BLOOD SODIUM DECREASED [None]
  - COLITIS [None]
  - DEHYDRATION [None]
  - DIARRHOEA [None]
  - HAEMOGLOBIN DECREASED [None]
  - IATROGENIC INJURY [None]
  - ILEUS PARALYTIC [None]
  - PRURITUS [None]
  - RENAL FAILURE [None]
  - URINARY TRACT INFECTION [None]
